FAERS Safety Report 9282116 (Version 1)
Quarter: 2013Q2

REPORT INFORMATION
  Report Type: Spontaneous
  Country: US (occurrence: None)
  Receive Date: 20130508
  Receipt Date: 20130508
  Transmission Date: 20140414
  Serious: No
  Sender: FDA-Public Use
  Company Number: None

PATIENT
  Age: 78 Year
  Sex: Female
  Weight: 47.6 kg

DRUGS (1)
  1. NALOXONE [Suspect]
     Indication: MENTAL STATUS CHANGES
     Dosage: 0.4MG ONCE IV
     Route: 042
     Dates: start: 20110324

REACTIONS (2)
  - Supraventricular tachycardia [None]
  - Unevaluable event [None]
